FAERS Safety Report 5939510-4 (Version None)
Quarter: 2008Q4

REPORT INFORMATION
  Report Type: 
  Country: None (occurrence: None)
  Receive Date: 20081030
  Receipt Date: 20081015
  Transmission Date: 20090506
  Serious: Yes (Hospitalization, Other)
  Sender: FDA-Public Use
  Company Number: DSU-2008-01692

PATIENT
  Age: 68 Year
  Sex: Male
  Weight: 79.8331 kg

DRUGS (5)
  1. BENICAR [Suspect]
     Indication: HYPERTENSION
     Dosage: 20 MG (20 MG,QD), PER ORAL;
     Route: 048
     Dates: end: 20080828
  2. BENICAR [Suspect]
     Indication: HYPERTENSION
     Dosage: 20 MG (20 MG,QD), PER ORAL;
     Route: 048
     Dates: start: 20081015, end: 20081015
  3. LIPITOR [Concomitant]
  4. ATENOLOL-CHLORTHALIDONE (CHLORTALIDONE,ATENOLOL) [Concomitant]
  5. DOXAZOSIN (TABLET) [Concomitant]

REACTIONS (7)
  - CHOLECYSTITIS [None]
  - CHOLELITHIASIS [None]
  - CHRONIC OBSTRUCTIVE PULMONARY DISEASE [None]
  - COELIAC DISEASE [None]
  - NAUSEA [None]
  - VOMITING [None]
  - WEIGHT DECREASED [None]
